FAERS Safety Report 8717173 (Version 2)
Quarter: 2012Q4

REPORT INFORMATION
  Report Type: 
  Country: US (occurrence: US)
  Receive Date: 20120810
  Receipt Date: 20121008
  Transmission Date: 20130627
  Serious: Yes (Disabling)
  Sender: FDA-Public Use
  Company Number: PHEH2012US003494

PATIENT
  Age: 56 None
  Sex: Male
  Weight: 77.1 kg

DRUGS (5)
  1. GILENYA [Suspect]
     Indication: MULTIPLE SCLEROSIS
     Dosage: 0.5 mg, QD
     Route: 048
     Dates: start: 20120206, end: 20120618
  2. REBIF [Concomitant]
     Indication: MULTIPLE SCLEROSIS
     Dosage: 44 ug, UNK
  3. NEURONTIN [Concomitant]
     Indication: MULTIPLE SCLEROSIS
     Dosage: 400 mg, TID
  4. ZANAFLEX [Concomitant]
     Indication: MULTIPLE SCLEROSIS
     Dosage: 3 mg, TID
  5. PROVIGIL [Concomitant]
     Indication: MULTIPLE SCLEROSIS
     Dosage: 200 mg, QD

REACTIONS (6)
  - Eye disorder [Recovered/Resolved]
  - Fatigue [Recovered/Resolved]
  - Depression [Recovered/Resolved]
  - Suicidal ideation [Recovered/Resolved]
  - General physical health deterioration [Recovered/Resolved]
  - Drug intolerance [Recovered/Resolved]
